FAERS Safety Report 4747684-6 (Version None)
Quarter: 2005Q3

REPORT INFORMATION
  Report Type: 
  Country: None (occurrence: None)
  Receive Date: 20050817
  Receipt Date: 20050817
  Transmission Date: 20060218
  Serious: Yes (Hospitalization)
  Sender: FDA-Public Use
  Company Number: None

PATIENT
  Sex: Female
  Weight: 81 kg

DRUGS (3)
  1. KETEK [Suspect]
     Indication: OTITIS MEDIA
     Dosage: 2 PO QD
     Route: 048
     Dates: start: 20050320, end: 20050323
  2. ACTIGALL [Concomitant]
  3. DIOVAN HCT [Concomitant]

REACTIONS (3)
  - BILIARY CIRRHOSIS PRIMARY [None]
  - NAUSEA [None]
  - VOMITING [None]
